FAERS Safety Report 13653786 (Version 1)
Quarter: 2017Q2

REPORT INFORMATION
  Report Type: Spontaneous
  Country: US (occurrence: US)
  Receive Date: 20170614
  Receipt Date: 20170614
  Transmission Date: 20170830
  Serious: Yes (Other)
  Sender: FDA-Public Use
  Company Number: US-NOVOPROD-549225

PATIENT
  Age: 56 Year
  Sex: Male
  Weight: 87.53 kg

DRUGS (3)
  1. NOVOLIN 70/30 [Suspect]
     Active Substance: INSULIN HUMAN
     Dosage: AS NEEDED
     Route: 058
  2. METFORMIN [Concomitant]
     Active Substance: METFORMIN HYDROCHLORIDE
     Indication: DIABETES MELLITUS
  3. NOVOLIN 70/30 [Suspect]
     Active Substance: INSULIN HUMAN
     Indication: DIABETES MELLITUS
     Dosage: 20 IU, BID
     Route: 058
     Dates: start: 201510

REACTIONS (8)
  - Fall [Recovered/Resolved]
  - Upper limb fracture [Recovering/Resolving]
  - Foot fracture [Recovering/Resolving]
  - Blood glucose decreased [Recovered/Resolved]
  - Vertigo [Recovering/Resolving]
  - Fall [Recovered/Resolved]
  - Hypoglycaemic unconsciousness [Recovered/Resolved]
  - Fall [Recovered/Resolved]

NARRATIVE: CASE EVENT DATE: 20160107
